FAERS Safety Report 16457888 (Version 1)
Quarter: 2019Q2

REPORT INFORMATION
  Report Type: Report from Study
  Country: GB (occurrence: GB)
  Receive Date: 20190620
  Receipt Date: 20190620
  Transmission Date: 20190711
  Serious: Yes (Hospitalization)
  Sender: FDA-Public Use
  Company Number: GB-MYLANLABS-2019M1056825

PATIENT
  Age: 82 Year
  Sex: Female

DRUGS (2)
  1. DOXAZOSIN [Suspect]
     Active Substance: DOXAZOSIN\DOXAZOSIN MESYLATE
     Indication: PRODUCT USED FOR UNKNOWN INDICATION
     Dosage: UNK
     Route: 065
  2. ARANESP [Suspect]
     Active Substance: DARBEPOETIN ALFA
     Indication: PRODUCT USED FOR UNKNOWN INDICATION
     Dosage: UNK (UNIT=SURECLICK )
     Route: 065

REACTIONS (7)
  - Blood glucose decreased [Unknown]
  - Alopecia [Unknown]
  - Adverse event [Unknown]
  - Eye swelling [Unknown]
  - Chest discomfort [Unknown]
  - Swelling [Unknown]
  - Hypertension [Unknown]
